FAERS Safety Report 9524350 (Version 1)
Quarter: 2013Q1

REPORT INFORMATION
  Report Type: Spontaneous
  Country: US (occurrence: None)
  Receive Date: 20130305
  Receipt Date: 20130305
  Transmission Date: 20140127
  Serious: Yes (Other)
  Sender: FDA-Public Use
  Company Number: 163-21880-12033433

PATIENT
  Age: 68 Year
  Sex: Male

DRUGS (4)
  1. REVLIMID [Suspect]
     Indication: PLASMA CELL MYELOMA
     Route: 048
     Dates: start: 201012, end: 201111
  2. GALANTAMINE (GALANTAMINE) [Concomitant]
  3. ONDANSETRON (ONDANSETRON) [Concomitant]
  4. TRAMADOL (TRAMADOL) [Concomitant]

REACTIONS (2)
  - Pancytopenia [None]
  - Protein total increased [None]
